FAERS Safety Report 18264963 (Version 2)
Quarter: 2020Q3

REPORT INFORMATION
  Report Type: Spontaneous
  Country: US (occurrence: US)
  Receive Date: 20200915
  Receipt Date: 20200915
  Transmission Date: 20201103
  Serious: No
  Sender: FDA-Public Use
  Company Number: US-JIANGSU HENGRUI MEDICINE CO., LTD.-2090708

PATIENT
  Age: 74 Year
  Sex: Male

DRUGS (5)
  1. R CHOP (CYCLOPHOSPHAMIDE, DOXORUBICIN HYDROCHLORIDE, PREDNISONE, RITUX [Suspect]
     Active Substance: CYCLOPHOSPHAMIDE\DOXORUBICIN\PREDNISONE\RITUXIMAB\VINCRISTINE
  2. RITUXIMAB. [Suspect]
     Active Substance: RITUXIMAB
  3. BENDAMUSTINE [Suspect]
     Active Substance: BENDAMUSTINE
  4. CYCLOPHOSPHAMIDE FOR INJECTION USP, 500 MG, 1 G AND 2 G PER SINGLE?DOS [Suspect]
     Active Substance: CYCLOPHOSPHAMIDE
     Indication: B-CELL LYMPHOMA
  5. CYCLOPHOSPHAMIDE W/PREDNISONE/VINCRISTINE SUL [Suspect]
     Active Substance: CYCLOPHOSPHAMIDE\PREDNISONE\VINCRISTINE

REACTIONS (1)
  - Neoplasm recurrence [Not Recovered/Not Resolved]
